FAERS Safety Report 10905042 (Version 1)
Quarter: 2015Q1

REPORT INFORMATION
  Report Type: Spontaneous
  Country: US (occurrence: None)
  Receive Date: 20150309
  Receipt Date: 20150309
  Transmission Date: 20150721
  Serious: Yes (Other)
  Sender: FDA-Public Use
  Company Number: None

PATIENT
  Age: 60 Year
  Sex: Female
  Weight: 87.09 kg

DRUGS (6)
  1. POLICOSANOL [Concomitant]
  2. VICODIN [Concomitant]
     Active Substance: ACETAMINOPHEN\HYDROCODONE BITARTRATE
  3. HARVONI [Suspect]
     Active Substance: LEDIPASVIR\SOFOSBUVIR
     Indication: HEPATITIS C
     Route: 048
     Dates: start: 20150101
  4. VITAMIN D 1000 MG [Concomitant]
  5. SCIALICA [Concomitant]
  6. ALPHA LIPOIC ACID [Concomitant]
     Active Substance: .ALPHA.-LIPOIC ACID

REACTIONS (5)
  - Muscle spasms [None]
  - Fatigue [None]
  - Energy increased [None]
  - Indifference [None]
  - Muscle tightness [None]

NARRATIVE: CASE EVENT DATE: 20150301
